FAERS Safety Report 7644629-6 (Version None)
Quarter: 2011Q3

REPORT INFORMATION
  Report Type: 
  Country: None (occurrence: None)
  Receive Date: 20110729
  Receipt Date: 20110713
  Transmission Date: 20111222
  Serious: No
  Sender: FDA-Public Use
  Company Number: US-B.I. PHARMACEUTICALS,INC./RIDGEFIELD-2011-BP-12548BP

PATIENT
  Sex: Female

DRUGS (7)
  1. ZANTAC 150 [Suspect]
     Indication: ASTHMA
     Dosage: 150 MG
     Route: 048
     Dates: start: 20110315
  2. DIOVAN [Concomitant]
     Indication: HYPERTENSION
     Route: 048
     Dates: start: 20090101
  3. ZANTAC 150 [Suspect]
     Indication: GASTROOESOPHAGEAL REFLUX DISEASE
  4. SPIRONOLACTONE [Concomitant]
     Indication: OEDEMA
     Route: 048
     Dates: start: 20090101
  5. GLYBURIDE [Concomitant]
     Indication: DIABETES MELLITUS
  6. DULERA ORAL INHALATION [Concomitant]
     Indication: DYSPNOEA
     Route: 055
     Dates: start: 20110623
  7. XALATAN [Concomitant]
     Indication: GLAUCOMA
     Dates: start: 20090101

REACTIONS (2)
  - ARTHRALGIA [None]
  - PAIN IN EXTREMITY [None]
